FAERS Safety Report 9931930 (Version 2)
Quarter: 2014Q1

REPORT INFORMATION
  Report Type: Spontaneous
  Country: TH (occurrence: TH)
  Receive Date: 20140228
  Receipt Date: 20140307
  Transmission Date: 20141002
  Serious: Yes (Death, Other)
  Sender: FDA-Public Use
  Company Number: TH-009507513-1402THA013000

PATIENT
  Age: 83 Year
  Sex: Male

DRUGS (1)
  1. JANUVIA (100 MG) [Suspect]
     Indication: DIABETES MELLITUS
     Dosage: 100 MG, QD
     Route: 048
     Dates: start: 20131030, end: 2014

REACTIONS (1)
  - Hepatic cancer [Fatal]
